FAERS Safety Report 4316973-1 (Version None)
Quarter: 2004Q1

REPORT INFORMATION
  Report Type: 
  Country: None (occurrence: None)
  Receive Date: 20040312
  Receipt Date: 20040301
  Transmission Date: 20041129
  Serious: Yes (Death, Hospitalization)
  Sender: FDA-Public Use
  Company Number: NSADSS2003004265

PATIENT
  Age: 87 Year
  Sex: Female
  Weight: 54.4316 kg

DRUGS (8)
  1. REMICADE [Suspect]
     Indication: RHEUMATOID ARTHRITIS
     Dosage: 200 MG, 1 IN 8 WEEK, INTRAVENOUS DRIP
     Route: 041
     Dates: start: 20000701, end: 20021217
  2. METHOTREXATE [Suspect]
     Indication: RHEUMATOID ARTHRITIS
     Dosage: 7.5 MG, 1 IN 1 WEK
     Dates: start: 20000701, end: 20021201
  3. SYNTHROID [Concomitant]
  4. FOSAMAX [Concomitant]
  5. TUMS (CALCIUM CARBONATE) [Concomitant]
  6. NEXIUM [Concomitant]
  7. ATENOLOL [Concomitant]
  8. ULTRAM [Concomitant]

REACTIONS (7)
  - ARTHRITIS [None]
  - BEDRIDDEN [None]
  - CELLULITIS [None]
  - HAEMORRHAGE [None]
  - LIMB INJURY [None]
  - PLATELET COUNT DECREASED [None]
  - POOR PERIPHERAL CIRCULATION [None]
